FAERS Safety Report 5718208-1 (Version None)
Quarter: 2008Q2

REPORT INFORMATION
  Report Type: 
  Country: None (occurrence: None)
  Receive Date: 20080425
  Receipt Date: 20080414
  Transmission Date: 20081010
  Serious: Yes (Hospitalization, Other)
  Sender: FDA-Public Use
  Company Number: CH-ROCHE-558565

PATIENT
  Sex: Male

DRUGS (3)
  1. VALIUM [Suspect]
     Indication: DRUG USE FOR UNKNOWN INDICATION
     Dosage: FOR TWO OR THREE DAYS.
     Route: 048
  2. VALIUM [Suspect]
     Dosage: RECEIVED 120-140 MG DAILY, MAXIMUM UP TO 240 MG DAILY
     Route: 048
  3. VALIUM [Suspect]
     Dosage: DOSE REDUCTION BY 10-20 MG A DAY
     Route: 048

REACTIONS (6)
  - DRUG ABUSE [None]
  - DRUG DEPENDENCE [None]
  - LOSS OF CONSCIOUSNESS [None]
  - OVERDOSE [None]
  - POISONING [None]
  - WITHDRAWAL SYNDROME [None]
